FAERS Safety Report 5225162-8 (Version None)
Quarter: 2007Q1

REPORT INFORMATION
  Report Type: 
  Country: None (occurrence: None)
  Receive Date: 20070131
  Receipt Date: 20070122
  Transmission Date: 20070707
  Serious: Yes (Hospitalization)
  Sender: FDA-Public Use
  Company Number: US-MERCK-0701USA04722

PATIENT
  Age: 74 Year
  Sex: Female

DRUGS (2)
  1. SINGULAIR [Suspect]
     Indication: ASTHMA
     Route: 048
     Dates: end: 20070117
  2. ALBUTEROL [Concomitant]

REACTIONS (6)
  - ASTHMA [None]
  - GASTROINTESTINAL HAEMORRHAGE [None]
  - INCREASED TENDENCY TO BRUISE [None]
  - INSOMNIA [None]
  - LUNG DISORDER [None]
  - PLEURAL FIBROSIS [None]
